FAERS Safety Report 8814903 (Version 2)
Quarter: 2012Q4

REPORT INFORMATION
  Report Type: 
  Country: US (occurrence: US)
  Receive Date: 20120928
  Receipt Date: 20121016
  Transmission Date: 20130627
  Serious: Yes (Other)
  Sender: FDA-Public Use
  Company Number: US-ARROW-2012-16297

PATIENT
  Age: 56 Year
  Sex: Male

DRUGS (5)
  1. ALLOPURINOL (WATSON LABORATORIES) [Suspect]
     Indication: PRODUCT USED FOR UNKNOWN INDICATION
     Dosage: 100 mg 1 day
     Route: 065
     Dates: start: 20120814
  2. VANCOMYCIN HCL (WATSON LABORATORIES) [Suspect]
     Indication: PRODUCT USED FOR UNKNOWN INDICATION
     Dosage: 125 mg 6 hour
     Route: 065
     Dates: start: 20120814, end: 20120824
  3. COLCHICINE (WATSON LABORATORIES) [Suspect]
     Indication: PRODUCT USED FOR UNKNOWN INDICATION
     Dosage: .6 mg 1 day
     Route: 065
     Dates: start: 20120817, end: 20120829
  4. IPILIMUMAB [Suspect]
     Indication: MALIGNANT MELANOMA
     Dosage: 1346 mg total
     Route: 042
     Dates: start: 20120702
  5. FLORASTOR [Suspect]
     Indication: PRODUCT USED FOR UNKNOWN INDICATION
     Dosage: 1 dosage form 1 day
     Route: 065
     Dates: start: 20120814

REACTIONS (3)
  - Rash maculo-papular [Unknown]
  - Diarrhoea [None]
  - Clostridium test positive [None]
